FAERS Safety Report 12762284 (Version 1)
Quarter: 2016Q3

REPORT INFORMATION
  Report Type: Spontaneous
  Country: JP (occurrence: JP)
  Receive Date: 20160920
  Receipt Date: 20160920
  Transmission Date: 20161109
  Serious: Yes (Hospitalization, Other)
  Sender: FDA-Public Use
  Company Number: JP-GLAXOSMITHKLINE-JP2016JPN051655

PATIENT
  Age: 80 Year
  Sex: Female
  Weight: 45 kg

DRUGS (8)
  1. CYMBALTA [Concomitant]
     Active Substance: DULOXETINE HYDROCHLORIDE
     Dosage: 20 MG, 1D
  2. ZYPREXA [Concomitant]
     Active Substance: OLANZAPINE
     Dosage: 3 MG, 1D
  3. LAMICTAL [Suspect]
     Active Substance: LAMOTRIGINE
     Indication: BIPOLAR DISORDER
     Dosage: 25 MG, 1D
     Route: 048
     Dates: start: 20140521
  4. LAMICTAL [Suspect]
     Active Substance: LAMOTRIGINE
     Dosage: 200 MG, 1D
     Route: 048
     Dates: start: 20140731, end: 20150422
  5. LAMICTAL [Suspect]
     Active Substance: LAMOTRIGINE
     Dosage: 75 MG, 1D
     Route: 048
     Dates: start: 20140703
  6. BIOFERMIN [Concomitant]
     Active Substance: BACILLUS SUBTILIS\LACTOBACILLUS ACIDOPHILUS\STREPTOCOCCUS FAECAIS
     Dosage: 2 G, 1D
  7. LAMICTAL [Suspect]
     Active Substance: LAMOTRIGINE
     Dosage: 100 MG, 1D
     Route: 048
     Dates: start: 20140710
  8. LAMICTAL [Suspect]
     Active Substance: LAMOTRIGINE
     Indication: DELUSION
     Dosage: 50 MG, 1D
     Route: 048
     Dates: start: 20140619

REACTIONS (2)
  - Eye discharge [Unknown]
  - Ocular hyperaemia [Recovered/Resolved]

NARRATIVE: CASE EVENT DATE: 20150422
